FAERS Safety Report 13675019 (Version 1)
Quarter: 2017Q2

REPORT INFORMATION
  Report Type: Spontaneous
  Country: US (occurrence: US)
  Receive Date: 20170621
  Receipt Date: 20170621
  Transmission Date: 20170830
  Serious: Yes (Other)
  Sender: FDA-Public Use
  Company Number: US-PFIZER INC-2017269259

PATIENT
  Age: 55 Year
  Sex: Female

DRUGS (1)
  1. IBRANCE [Suspect]
     Active Substance: PALBOCICLIB
     Dosage: 125 MG, CYCLIC(1 PO QD FOR 21 DAYS THEN 7 DAYS OFF)
     Route: 048
     Dates: start: 20170420, end: 20170522

REACTIONS (1)
  - Neutropenia [Recovering/Resolving]
